FAERS Safety Report 9825351 (Version 2)
Quarter: 2013Q4

REPORT INFORMATION
  Report Type: Spontaneous
  Country: US (occurrence: None)
  Receive Date: 20131223
  Receipt Date: 20131223
  Transmission Date: 20140711
  Serious: Yes (Other)
  Sender: FDA-Public Use
  Company Number: 219358LEO

PATIENT
  Age: 36 Year
  Sex: Female

DRUGS (2)
  1. PICATO [Suspect]
     Indication: NASAL DISORDER
     Route: 061
     Dates: start: 20121009, end: 20121011
  2. PICATO [Suspect]
     Indication: ERYTHEMA
     Route: 061
     Dates: start: 20121009, end: 20121011

REACTIONS (8)
  - Application site erythema [None]
  - Application site swelling [None]
  - Acne [None]
  - Acne [None]
  - Drug administration error [None]
  - Off label use [None]
  - Off label use [None]
  - Skin discolouration [None]
